FAERS Safety Report 13359074 (Version 7)
Quarter: 2017Q4

REPORT INFORMATION
  Report Type: Report from Study
  Country: FR (occurrence: FR)
  Receive Date: 20170322
  Receipt Date: 20171030
  Transmission Date: 20180320
  Serious: Yes (Other)
  Sender: FDA-Public Use
  Company Number: FR-TAKEDA-2017MPI002398

PATIENT
  Age: 74 Year
  Sex: Male
  Weight: 74 kg

DRUGS (29)
  1. OFLOXACINE [Concomitant]
     Active Substance: OFLOXACIN
     Dosage: 200 MG, BID
     Route: 048
     Dates: start: 20150727, end: 20150817
  2. VITAMIN C [Concomitant]
     Active Substance: ASCORBIC ACID
     Indication: VITAMIN SUPPLEMENTATION
     Dosage: UNK
     Route: 048
     Dates: start: 201602, end: 201602
  3. DROPERIDOL. [Concomitant]
     Active Substance: DROPERIDOL
     Indication: PREMEDICATION
     Dosage: 1.25 MG, UNK
     Route: 042
     Dates: start: 20170109, end: 20170109
  4. PARACETAMOL [Concomitant]
     Active Substance: ACETAMINOPHEN
     Dosage: 500 MG, Q4HR
     Route: 048
     Dates: start: 20170109
  5. AMLODIPINE [Concomitant]
     Active Substance: AMLODIPINE BESYLATE
     Indication: HYPERTENSION
     Dosage: 5 MG, QD
     Route: 048
     Dates: start: 20150122
  6. VALACYCLOVIR [Concomitant]
     Active Substance: VALACYCLOVIR HYDROCHLORIDE
     Indication: INFECTION PROPHYLAXIS
     Dosage: 500 MG, BID
     Route: 048
     Dates: start: 20150507
  7. SALBUTAMOL [Concomitant]
     Active Substance: ALBUTEROL
     Indication: ASTHMA
     Dosage: UNK
     Route: 002
     Dates: start: 1943, end: 20150507
  8. ENOXAPARINA SODICA [Concomitant]
     Active Substance: ENOXAPARIN SODIUM
     Indication: THROMBOSIS PROPHYLAXIS
     Dosage: 0.4 ML, QD
     Route: 058
     Dates: start: 20150210, end: 20161215
  9. AMOXICILLINE/ACIDE CLAVULANIQUE [Concomitant]
     Active Substance: AMOXICILLIN\CLAVULANIC ACID
     Dosage: UNK, QD
     Route: 048
     Dates: start: 20160911, end: 20160918
  10. ZOLEDRONIC ACID [Concomitant]
     Active Substance: ZOLEDRONIC ACID
     Dosage: 4 MG, MONTHLY
     Route: 042
     Dates: start: 20160604
  11. NEFOPAM [Concomitant]
     Active Substance: NEFOPAM
     Dosage: 20 MG, UNK
     Route: 048
     Dates: start: 20170109, end: 20170109
  12. IXAZOMIB [Suspect]
     Active Substance: IXAZOMIB
     Indication: PLASMA CELL MYELOMA
     Dosage: 3.0 MG, UNK
     Route: 048
     Dates: start: 20150210, end: 20170130
  13. SODIUM BICARBONATE. [Concomitant]
     Active Substance: SODIUM BICARBONATE
     Indication: PROPHYLAXIS
     Dosage: 1 G, TID
     Route: 048
     Dates: start: 20150122
  14. LYSINE ACETYLSALICYLIC [Concomitant]
     Active Substance: ASPIRIN DL-LYSINE
     Indication: THROMBOSIS PROPHYLAXIS
     Dosage: 100 MG, QD
     Route: 048
     Dates: start: 20150604
  15. BUDESONIDE. [Concomitant]
     Active Substance: BUDESONIDE
     Indication: ASTHMA
     Dosage: UNK
     Route: 055
     Dates: start: 1943, end: 20150507
  16. RACECADOTRIL [Concomitant]
     Active Substance: RACECADOTRIL
     Dosage: 100 MG, TID
     Route: 048
     Dates: start: 20160628, end: 20161013
  17. AZITHROMYCIN ANHYDROUS. [Concomitant]
     Active Substance: AZITHROMYCIN ANHYDROUS
     Dosage: 250 MG, QD
     Route: 048
     Dates: start: 20160726, end: 20160729
  18. REMIFENTANIL [Concomitant]
     Active Substance: REMIFENTANIL
     Dosage: 506 ?G, UNK
     Route: 042
     Dates: start: 20170109, end: 20170109
  19. TRAMADOL. [Concomitant]
     Active Substance: TRAMADOL
     Dosage: 100 MG, UNK
     Route: 048
     Dates: start: 20170109, end: 20170403
  20. PARACETAMOL W/TRAMADOL HYDROCHLORIDE [Concomitant]
     Active Substance: ACETAMINOPHEN\TRAMADOL HYDROCHLORIDE
     Indication: SCIATICA
     Dosage: UNK, BID
     Route: 048
     Dates: start: 20160405, end: 20160419
  21. PARACETAMOL [Concomitant]
     Active Substance: ACETAMINOPHEN
     Indication: SCIATICA
     Dosage: UNK
     Route: 048
     Dates: start: 20160326, end: 20160405
  22. AZITHROMYCIN ANHYDROUS. [Concomitant]
     Active Substance: AZITHROMYCIN ANHYDROUS
     Dosage: 250 MG, BID
     Route: 048
     Dates: start: 20160725, end: 20160725
  23. PROPOFOL. [Concomitant]
     Active Substance: PROPOFOL
     Dosage: 776 ?G, UNK
     Route: 042
     Dates: start: 20170109, end: 20170109
  24. LENALIDOMIDE [Suspect]
     Active Substance: LENALIDOMIDE
     Indication: PLASMA CELL MYELOMA
     Dosage: 10 MG, UNK
     Route: 048
     Dates: start: 20150210, end: 20170205
  25. PARACETAMOL [Concomitant]
     Active Substance: ACETAMINOPHEN
     Dosage: 1 G, UNK
     Route: 042
     Dates: start: 20170109, end: 20170109
  26. KETOPROFENE                        /00321701/ [Concomitant]
     Active Substance: KETOPROFEN
     Indication: SCIATICA
     Dosage: UNK
     Route: 048
     Dates: start: 20160302, end: 20160405
  27. DEXAMETHASONE. [Suspect]
     Active Substance: DEXAMETHASONE
     Indication: PLASMA CELL MYELOMA
     Dosage: 40 MG, UNK
     Route: 048
     Dates: start: 20150210, end: 20160616
  28. PARACETAMOL W/TRAMADOL HYDROCHLORIDE [Concomitant]
     Active Substance: ACETAMINOPHEN\TRAMADOL HYDROCHLORIDE
     Dosage: UNK, TID
     Route: 048
     Dates: start: 20160405, end: 20160531
  29. CEFAZOLINE [Concomitant]
     Active Substance: CEFAZOLIN SODIUM
     Dosage: 2 G, UNK
     Route: 042
     Dates: start: 20170109, end: 20170109

REACTIONS (1)
  - Transitional cell cancer of the renal pelvis and ureter [Not Recovered/Not Resolved]

NARRATIVE: CASE EVENT DATE: 20161215
